FAERS Safety Report 17836350 (Version 1)
Quarter: 2020Q2

REPORT INFORMATION
  Report Type: Spontaneous
  Country: FR (occurrence: FR)
  Receive Date: 20200528
  Receipt Date: 20200528
  Transmission Date: 20200714
  Serious: Yes (Death, Other)
  Sender: FDA-Public Use
  Company Number: FR-MYLANLABS-2020M1051830

PATIENT
  Weight: .71 kg

DRUGS (14)
  1. AMIKACIN. [Suspect]
     Active Substance: AMIKACIN
     Indication: SEPSIS
     Dosage: 15 MG/KG
     Route: 042
     Dates: start: 20190615, end: 20190616
  2. ZYMAD [Concomitant]
     Active Substance: CHOLECALCIFEROL
     Indication: PRODUCT USED FOR UNKNOWN INDICATION
     Dosage: 1200 IU, QD
     Route: 065
     Dates: start: 20190605, end: 20190615
  3. NACL [Concomitant]
     Active Substance: SODIUM CHLORIDE
     Indication: PRODUCT USED FOR UNKNOWN INDICATION
     Dosage: 20 ML/KG
     Route: 065
     Dates: start: 20190616
  4. ADRENALINE                         /00003901/ [Concomitant]
     Active Substance: EPINEPHRINE
     Indication: BRADYCARDIA
     Dosage: 10 TO 30 MICROG/KG REPEATEDLY (MAX 1MG /DOSE
     Route: 065
  5. VANCOMYCIN [Suspect]
     Active Substance: VANCOMYCIN
     Indication: SEPSIS
     Dosage: 7 MG/KG
     Route: 042
     Dates: start: 20190615
  6. KINOX                              /00697204/ [Concomitant]
     Indication: PRODUCT USED FOR UNKNOWN INDICATION
     Dosage: UNK
     Route: 065
     Dates: start: 20190616
  7. FOLINIC ACID [Concomitant]
     Active Substance: LEUCOVORIN
     Indication: PRODUCT USED FOR UNKNOWN INDICATION
     Dosage: 25 MG OF 5 MG/2 ML, Q24H
     Route: 048
     Dates: start: 20190612, end: 20190615
  8. CEFTAZIDIME. [Suspect]
     Active Substance: CEFTAZIDIME
     Indication: SEPSIS
     Dosage: 50 MG/KG, Q12H
     Route: 065
     Dates: start: 20190615, end: 20190616
  9. VANCOMYCIN [Suspect]
     Active Substance: VANCOMYCIN
     Dosage: 30 MG/KG, QD
     Route: 042
     Dates: end: 20190616
  10. METRONIDAZOLE. [Suspect]
     Active Substance: METRONIDAZOLE
     Indication: SEPSIS
     Dosage: 7.5 MG/KG
     Route: 042
     Dates: start: 20190615, end: 20190616
  11. IRON SULFATE [Concomitant]
     Active Substance: FERROUS SULFATE ANHYDROUS
     Indication: PRODUCT USED FOR UNKNOWN INDICATION
     Dosage: 3 MG/KG, OF 125 MG  Q12H
     Route: 065
     Dates: start: 20190612, end: 20190615
  12. NEORECORMON [Concomitant]
     Active Substance: ERYTHROPOIETIN
     Indication: PRODUCT USED FOR UNKNOWN INDICATION
     Dosage: 250 IU/KG, Q3W
     Route: 065
     Dates: start: 20190612, end: 20190614
  13. MORPHIN                            /00036303/ [Concomitant]
     Active Substance: MORPHINE
     Indication: PRODUCT USED FOR UNKNOWN INDICATION
     Dosage: 40 MICROGRAM/KILOGRAM, QH, (CONTINUOUS PERFUSION ON EPICUTANEOU-CAVA CATHETER)
     Route: 065
     Dates: start: 20190605, end: 20190616
  14. MIDAZOLAM. [Concomitant]
     Active Substance: MIDAZOLAM
     Indication: PRODUCT USED FOR UNKNOWN INDICATION
     Dosage: 50 TO 100 MICROG/KG, AFTERWARDS 60 MICROGRAMS/KG/H
     Route: 065
     Dates: start: 20190615, end: 20190616

REACTIONS (4)
  - Cerebral haemorrhage [Unknown]
  - Haemodynamic instability [Unknown]
  - Septic shock [Fatal]
  - Jaundice [Unknown]

NARRATIVE: CASE EVENT DATE: 20190615
